FAERS Safety Report 7588890-5 (Version None)
Quarter: 2011Q3

REPORT INFORMATION
  Report Type: 
  Country: None (occurrence: None)
  Receive Date: 20110705
  Receipt Date: 20110622
  Transmission Date: 20111222
  Serious: Yes (Hospitalization)
  Sender: FDA-Public Use
  Company Number: FR-JNJFOC-20110611697

PATIENT
  Sex: Male

DRUGS (12)
  1. DURAGESIC-100 [Suspect]
     Indication: ARTHRALGIA
     Route: 062
     Dates: start: 20110415, end: 20110423
  2. ATORVASTATIN CALCIUM [Concomitant]
     Route: 048
  3. XANAX [Concomitant]
     Dosage: ON EVENING
     Route: 048
  4. MORPHINE SULFATE [Suspect]
     Indication: ARTHRALGIA
     Route: 048
     Dates: start: 20110415
  5. AMOXICILLIN [Concomitant]
     Route: 048
  6. INSPRA [Concomitant]
     Dosage: ON MORNING
     Route: 048
  7. LASIX [Concomitant]
     Dosage: 1/2 500 MG ON MORNING
     Route: 048
  8. ENALAPRIL MALEATE [Concomitant]
     Route: 048
  9. PAROXETINE HCL [Concomitant]
     Dosage: ON MORNING
     Route: 048
  10. ALLOPURINOL [Concomitant]
     Dosage: ON EVENING
     Route: 048
  11. BISOPROLOL FUMARATE [Concomitant]
     Dosage: ON MORNING
     Route: 048
  12. SINTROM [Concomitant]
     Dosage: AIM : INR BETWEEN 3 AND 4.5
     Route: 048
     Dates: end: 20110424

REACTIONS (5)
  - MIOSIS [None]
  - ALTERED STATE OF CONSCIOUSNESS [None]
  - HYPOTENSION [None]
  - CREATININE RENAL CLEARANCE DECREASED [None]
  - AGITATION [None]
